FAERS Safety Report 7525510-X (Version None)
Quarter: 2011Q2

REPORT INFORMATION
  Report Type: 
  Country: None (occurrence: None)
  Receive Date: 20110606
  Receipt Date: 20101220
  Transmission Date: 20111010
  Serious: Yes (Hospitalization, Other)
  Sender: FDA-Public Use
  Company Number: US-BAYER-201042124NA

PATIENT
  Age: 54 Year
  Sex: Female

DRUGS (8)
  1. CIPROFLOXACIN HCL [Concomitant]
  2. COREG [Concomitant]
  3. PLAVIX [Concomitant]
  4. ISOSORBIDE [Concomitant]
  5. COUMADIN [Concomitant]
  6. REBIF [Concomitant]
  7. INTERFERON BETA-1B [Suspect]
     Indication: MULTIPLE SCLEROSIS
     Dosage: 4 MIU, QOD
     Route: 058
     Dates: start: 20101020, end: 20101121
  8. ALTACE [Concomitant]

REACTIONS (9)
  - MUSCULOSKELETAL PAIN [None]
  - URINARY TRACT INFECTION [None]
  - BACK PAIN [None]
  - PALPITATIONS [None]
  - CHEST DISCOMFORT [None]
  - NAUSEA [None]
  - MUSCULOSKELETAL CHEST PAIN [None]
  - DECREASED APPETITE [None]
  - WEIGHT DECREASED [None]
